FAERS Safety Report 6903681-3 (Version None)
Quarter: 2010Q3

REPORT INFORMATION
  Report Type: 
  Country: None (occurrence: None)
  Receive Date: 20100803
  Receipt Date: 20081107
  Transmission Date: 20110219
  Serious: No
  Sender: FDA-Public Use
  Company Number: US-PFIZER INC-2008079799

PATIENT
  Sex: Female
  Weight: 62.6 kg

DRUGS (9)
  1. LYRICA [Suspect]
     Indication: NEUROPATHY PERIPHERAL
     Route: 048
     Dates: start: 20071018, end: 20071020
  2. NEURONTIN [Concomitant]
  3. OXYCONTIN [Concomitant]
     Indication: BONE PAIN
  4. VICODIN [Concomitant]
     Indication: BREAKTHROUGH PAIN
  5. NEXIUM [Concomitant]
     Indication: ULCER
  6. ACIPHEX [Concomitant]
     Indication: ULCER
  7. ADVAIR DISKUS 100/50 [Concomitant]
     Indication: ASTHMA
  8. CHLOR-TRIMETON [Concomitant]
     Indication: ASTHMA
  9. BENADRYL [Concomitant]
     Indication: ASTHMA

REACTIONS (11)
  - BALANCE DISORDER [None]
  - CHEST DISCOMFORT [None]
  - DIZZINESS [None]
  - FATIGUE [None]
  - FEELING ABNORMAL [None]
  - GAIT DISTURBANCE [None]
  - HYPERHIDROSIS [None]
  - HYPERSOMNIA [None]
  - MENTAL IMPAIRMENT [None]
  - NAUSEA [None]
  - TINNITUS [None]
